FAERS Safety Report 6571202-3 (Version None)
Quarter: 2010Q1

REPORT INFORMATION
  Report Type: 
  Country: None (occurrence: None)
  Receive Date: 20100129
  Receipt Date: 20100115
  Transmission Date: 20100710
  Serious: Yes (Other)
  Sender: FDA-Public Use
  Company Number: LI02010002

PATIENT
  Age: 39 Year
  Sex: Female
  Weight: 54.4316 kg

DRUGS (2)
  1. LIOTHYRONINE SODIUM TAB [Suspect]
     Indication: HYPOTHYROIDISM
     Dosage: 25MCG, QD, ORAL
     Route: 048
     Dates: start: 20100112, end: 20100115
  2. LEVOTHYROXINE SODIUM [Concomitant]

REACTIONS (14)
  - DRUG HYPERSENSITIVITY [None]
  - DYSPHAGIA [None]
  - DYSPHONIA [None]
  - DYSPNOEA [None]
  - ERYTHEMA [None]
  - EYE SWELLING [None]
  - EYELID OEDEMA [None]
  - MENSTRUAL DISORDER [None]
  - PALATAL DISORDER [None]
  - PRODUCT SUBSTITUTION ISSUE [None]
  - SALIVA ALTERED [None]
  - SWELLING [None]
  - SWELLING FACE [None]
  - URTICARIA [None]
